FAERS Safety Report 10180726 (Version 2)
Quarter: 2014Q2

REPORT INFORMATION
  Report Type: Spontaneous
  Country: US (occurrence: US)
  Receive Date: 20140519
  Receipt Date: 20140519
  Transmission Date: 20141212
  Serious: No
  Sender: FDA-Public Use
  Company Number: US-AMGEN INC.-USASP2014016212

PATIENT
  Age: 62 Year
  Sex: Female
  Weight: 44.54 kg

DRUGS (5)
  1. PROLIA [Suspect]
     Indication: OSTEOPOROSIS POSTMENOPAUSAL
     Dosage: 60 MG, Q6MO
     Route: 058
     Dates: start: 20130802
  2. PROLIA [Suspect]
     Route: 058
  3. MELOXICAM [Concomitant]
     Indication: ARTHRITIS
  4. GABAPENTIN [Concomitant]
     Indication: NEURALGIA
  5. GABAPENTIN [Concomitant]
     Indication: RESTLESS LEGS SYNDROME

REACTIONS (6)
  - Restless legs syndrome [Not Recovered/Not Resolved]
  - Pain [Unknown]
  - Abdominal discomfort [Unknown]
  - Arthralgia [Not Recovered/Not Resolved]
  - Mobility decreased [Unknown]
  - Gait disturbance [Unknown]
